FAERS Safety Report 25896313 (Version 1)
Quarter: 2025Q4

REPORT INFORMATION
  Report Type: Report from Study
  Country: US (occurrence: US)
  Receive Date: 20251008
  Receipt Date: 20251008
  Transmission Date: 20260118
  Serious: Yes (Other)
  Sender: MYLAN
  Company Number: US-MYLANLABS-2025M1085699

PATIENT
  Age: 77 Year
  Sex: Male

DRUGS (12)
  1. YUPELRI [Suspect]
     Active Substance: REVEFENACIN
     Indication: Chronic obstructive pulmonary disease
     Dosage: 175 MICROGRAM PER 3 MILLILITRE, QD (ONCE DAILY VIA NEBULIZER)
     Dates: start: 20250913, end: 20250920
  2. YUPELRI [Suspect]
     Active Substance: REVEFENACIN
     Dosage: 175 MICROGRAM PER 3 MILLILITRE, QD (ONCE DAILY VIA NEBULIZER)
     Route: 065
     Dates: start: 20250913, end: 20250920
  3. YUPELRI [Suspect]
     Active Substance: REVEFENACIN
     Dosage: 175 MICROGRAM PER 3 MILLILITRE, QD (ONCE DAILY VIA NEBULIZER)
     Route: 065
     Dates: start: 20250913, end: 20250920
  4. YUPELRI [Suspect]
     Active Substance: REVEFENACIN
     Dosage: 175 MICROGRAM PER 3 MILLILITRE, QD (ONCE DAILY VIA NEBULIZER)
     Dates: start: 20250913, end: 20250920
  5. FORMOTEROL [Concomitant]
     Active Substance: FORMOTEROL
     Dosage: UNK
  6. FORMOTEROL [Concomitant]
     Active Substance: FORMOTEROL
     Dosage: UNK
     Route: 065
  7. FORMOTEROL [Concomitant]
     Active Substance: FORMOTEROL
     Dosage: UNK
     Route: 065
  8. FORMOTEROL [Concomitant]
     Active Substance: FORMOTEROL
     Dosage: UNK
  9. BUDESONIDE [Concomitant]
     Active Substance: BUDESONIDE
     Dosage: UNK
  10. BUDESONIDE [Concomitant]
     Active Substance: BUDESONIDE
     Dosage: UNK
     Route: 065
  11. BUDESONIDE [Concomitant]
     Active Substance: BUDESONIDE
     Dosage: UNK
     Route: 065
  12. BUDESONIDE [Concomitant]
     Active Substance: BUDESONIDE
     Dosage: UNK

REACTIONS (1)
  - Dyspnoea [Recovered/Resolved]

NARRATIVE: CASE EVENT DATE: 20250915
